FAERS Safety Report 5601313-8 (Version None)
Quarter: 2008Q1

REPORT INFORMATION
  Report Type: 
  Country: None (occurrence: None)
  Receive Date: 20080124
  Receipt Date: 20080122
  Transmission Date: 20080703
  Serious: Yes (Hospitalization)
  Sender: FDA-Public Use
  Company Number: B0504417A

PATIENT
  Age: 82 Year
  Sex: Male

DRUGS (12)
  1. AUGMENTIN '125' [Suspect]
     Indication: C-REACTIVE PROTEIN INCREASED
     Dosage: 1G THREE TIMES PER DAY
     Route: 042
     Dates: start: 20070410, end: 20070419
  2. AUGMENTIN '125' [Suspect]
     Indication: C-REACTIVE PROTEIN INCREASED
     Dosage: 1G THREE TIMES PER DAY
     Route: 048
     Dates: start: 20070419, end: 20070424
  3. TAMSULOSIN HCL [Suspect]
     Dosage: .4MG PER DAY
     Route: 048
     Dates: end: 20070410
  4. FLECAINIDE ACETATE [Suspect]
     Dosage: 100MG TWICE PER DAY
     Route: 048
     Dates: end: 20070410
  5. VASTAREL [Suspect]
     Indication: ANGINA PECTORIS
     Dosage: 20MG TWICE PER DAY
     Route: 048
     Dates: end: 20070410
  6. LEXOMIL [Suspect]
     Dosage: .25UNIT PER DAY
     Route: 048
     Dates: end: 20070410
  7. SERESTA [Suspect]
     Dosage: 75MG PER DAY
     Route: 048
     Dates: end: 20070410
  8. LASIX [Suspect]
     Dosage: 20MG PER DAY
     Route: 048
     Dates: end: 20070410
  9. TAVANIC [Concomitant]
     Indication: INFECTION
     Dosage: 500MG PER DAY
     Dates: start: 20070412, end: 20070427
  10. TADENAN [Concomitant]
     Dosage: 50MG PER DAY
     Route: 048
  11. STILNOX [Concomitant]
     Dosage: 20MG PER DAY
     Route: 048
  12. DEROXAT [Concomitant]
     Dosage: 20MG PER DAY
     Route: 048

REACTIONS (7)
  - ALANINE AMINOTRANSFERASE INCREASED [None]
  - ASPARTATE AMINOTRANSFERASE INCREASED [None]
  - BLOOD ALKALINE PHOSPHATASE INCREASED [None]
  - CHOLELITHIASIS [None]
  - CHOLESTASIS [None]
  - GAMMA-GLUTAMYLTRANSFERASE INCREASED [None]
  - JAUNDICE [None]
